FAERS Safety Report 12460970 (Version 1)
Quarter: 2016Q2

REPORT INFORMATION
  Report Type: Report from Study
  Country: US (occurrence: US)
  Receive Date: 20160613
  Receipt Date: 20160613
  Transmission Date: 20160815
  Serious: No
  Sender: FDA-Public Use
  Company Number: US-AMGEN-USASL2016073177

PATIENT
  Age: 59 Year
  Sex: Female

DRUGS (1)
  1. ENBREL [Suspect]
     Active Substance: ETANERCEPT
     Indication: OSTEOPOROSIS
     Dosage: UNK
     Route: 065
     Dates: end: 2016

REACTIONS (7)
  - Decreased immune responsiveness [Unknown]
  - Unevaluable event [Unknown]
  - Blister [Recovered/Resolved]
  - Off label use [Unknown]
  - Bronchitis [Unknown]
  - Scar [Unknown]
  - Impaired healing [Recovered/Resolved]

NARRATIVE: CASE EVENT DATE: 2016
